FAERS Safety Report 25543328 (Version 1)
Quarter: 2025Q3

REPORT INFORMATION
  Report Type: Spontaneous
  Country: US (occurrence: US)
  Receive Date: 20250711
  Receipt Date: 20250711
  Transmission Date: 20251021
  Serious: Yes (Other)
  Sender: MYLAN
  Company Number: US-MYLANLABS-2025M1057735

PATIENT
  Age: 39 Year
  Sex: Female

DRUGS (20)
  1. GEMCITABINE [Suspect]
     Active Substance: GEMCITABINE
     Indication: Cholangiocarcinoma
  2. GEMCITABINE [Suspect]
     Active Substance: GEMCITABINE
     Route: 065
  3. GEMCITABINE [Suspect]
     Active Substance: GEMCITABINE
     Route: 065
  4. GEMCITABINE [Suspect]
     Active Substance: GEMCITABINE
  5. CISPLATIN [Suspect]
     Active Substance: CISPLATIN
     Indication: Cholangiocarcinoma
  6. CISPLATIN [Suspect]
     Active Substance: CISPLATIN
     Route: 065
  7. CISPLATIN [Suspect]
     Active Substance: CISPLATIN
     Route: 065
  8. CISPLATIN [Suspect]
     Active Substance: CISPLATIN
  9. CAPECITABINE [Suspect]
     Active Substance: CAPECITABINE
     Indication: Cholangiocarcinoma
  10. CAPECITABINE [Suspect]
     Active Substance: CAPECITABINE
     Route: 065
  11. CAPECITABINE [Suspect]
     Active Substance: CAPECITABINE
     Route: 065
  12. CAPECITABINE [Suspect]
     Active Substance: CAPECITABINE
  13. NELVUTAMIG [Suspect]
     Active Substance: NELVUTAMIG
     Indication: Cholangiocarcinoma
  14. NELVUTAMIG [Suspect]
     Active Substance: NELVUTAMIG
     Route: 065
  15. NELVUTAMIG [Suspect]
     Active Substance: NELVUTAMIG
     Route: 065
  16. NELVUTAMIG [Suspect]
     Active Substance: NELVUTAMIG
  17. NIVOLUMAB [Suspect]
     Active Substance: NIVOLUMAB
     Indication: Cholangiocarcinoma
  18. NIVOLUMAB [Suspect]
     Active Substance: NIVOLUMAB
     Route: 065
  19. NIVOLUMAB [Suspect]
     Active Substance: NIVOLUMAB
     Route: 065
  20. NIVOLUMAB [Suspect]
     Active Substance: NIVOLUMAB

REACTIONS (2)
  - Drug ineffective [Unknown]
  - Disease progression [Unknown]
